FAERS Safety Report 5903044-3 (Version None)
Quarter: 2008Q3

REPORT INFORMATION
  Report Type: 
  Country: None (occurrence: None)
  Receive Date: 20080930
  Receipt Date: 20080924
  Transmission Date: 20090109
  Serious: Yes (Hospitalization)
  Sender: FDA-Public Use
  Company Number: IT-CELGENEUS-083-21880-08080684

PATIENT
  Sex: Female
  Weight: 84 kg

DRUGS (2)
  1. REVLIMID [Suspect]
     Indication: MULTIPLE MYELOMA
     Route: 048
     Dates: start: 20080326, end: 20080507
  2. DEPALGOS [Concomitant]
     Indication: BONE PAIN
     Route: 065
     Dates: start: 20070101

REACTIONS (2)
  - BRONCHIAL DISORDER [None]
  - HYPERTENSIVE CARDIOMYOPATHY [None]
